FAERS Safety Report 7371527-8 (Version None)
Quarter: 2011Q1

REPORT INFORMATION
  Report Type: 
  Country: None (occurrence: None)
  Receive Date: 20110324
  Receipt Date: 20110317
  Transmission Date: 20110831
  Serious: Yes (Hospitalization)
  Sender: FDA-Public Use
  Company Number: TR-PFIZER INC-2011059536

PATIENT
  Age: 56 Year
  Sex: Male
  Weight: 75.5 kg

DRUGS (6)
  1. MYCOPHENOLATE MOFETIL [Concomitant]
     Dosage: 720 + 720
     Dates: start: 20110114, end: 20110301
  2. NEORAL [Concomitant]
     Dosage: 250 + 250
     Dates: start: 20110114, end: 20110314
  3. RAPAMUNE [Suspect]
     Dosage: 1 MG, 1X/DAY
     Route: 048
  4. ANTILYMPHOCYTE IMMUNOGLOBULIN (HORSE) [Concomitant]
     Dosage: 300 + 200
     Dates: start: 20110306, end: 20110307
  5. RAPAMUNE [Suspect]
     Dosage: 3 MG, 1X/DAY
     Route: 048
     Dates: start: 20110301
  6. NEORAL [Concomitant]
     Dosage: 50 + 50
     Dates: start: 20110314

REACTIONS (2)
  - BLOOD CREATININE INCREASED [None]
  - RENAL TUBULAR NECROSIS [None]
